FAERS Safety Report 15131255 (Version 2)
Quarter: 2018Q3

REPORT INFORMATION
  Report Type: Spontaneous
  Country: GR (occurrence: GR)
  Receive Date: 20180711
  Receipt Date: 20180907
  Transmission Date: 20181010
  Serious: Yes (Other)
  Sender: FDA-Public Use
  Company Number: GR-SA-2017SA255853

PATIENT
  Age: 62 Year
  Sex: Female

DRUGS (50)
  1. DOCETAXEL. [Suspect]
     Active Substance: DOCETAXEL
     Indication: BREAST CANCER METASTATIC
     Dosage: 1 DF, QCY
     Route: 065
     Dates: start: 2009, end: 2009
  2. CAPECITABINE. [Suspect]
     Active Substance: CAPECITABINE
     Dosage: 1 DF, QD
     Dates: start: 2009, end: 2009
  3. PACLITAXEL. [Suspect]
     Active Substance: PACLITAXEL
     Indication: BREAST CANCER METASTATIC
     Dosage: 1 DF, QCY
     Route: 065
     Dates: start: 2006, end: 2006
  4. TRASTUZUMAB. [Suspect]
     Active Substance: TRASTUZUMAB
     Dosage: 1 DF, QCY
     Route: 065
     Dates: start: 2009, end: 2009
  5. TAMOXIFEN CITRATE. [Suspect]
     Active Substance: TAMOXIFEN CITRATE
     Indication: RECURRENT CANCER
     Dosage: 1 DF, QCY,COMBINATION WITH TRASTUZUMAB
     Route: 048
     Dates: start: 2009, end: 2009
  6. TAMOXIFEN CITRATE. [Suspect]
     Active Substance: TAMOXIFEN CITRATE
     Indication: BREAST CANCER METASTATIC
     Dosage: 1 DF,QD
     Route: 065
     Dates: start: 2009
  7. EVEROLIMUS. [Suspect]
     Active Substance: EVEROLIMUS
     Dosage: 1 DF
     Dates: start: 2009
  8. EXEMESTANE. [Suspect]
     Active Substance: EXEMESTANE
     Indication: RECURRENT CANCER
     Dosage: 1 DF, QCY
     Route: 065
     Dates: start: 2009, end: 2009
  9. TRASTUZUMAB. [Suspect]
     Active Substance: TRASTUZUMAB
     Dosage: 1 DF, QCY
     Route: 065
     Dates: start: 2009, end: 2009
  10. CYCLOPHOSPHAMIDE MONOHYDRATE [Suspect]
     Active Substance: CYCLOPHOSPHAMIDE
     Indication: BREAST CANCER METASTATIC
     Dosage: UNK UNK,QCY
     Route: 065
     Dates: start: 2006, end: 2006
  11. ERIBULIN [Suspect]
     Active Substance: ERIBULIN
     Indication: RECURRENT CANCER
     Dosage: 1 DF,QD
     Route: 065
     Dates: start: 2009
  12. METHOTREXATE SODIUM. [Suspect]
     Active Substance: METHOTREXATE SODIUM
     Indication: BREAST CANCER METASTATIC
     Dosage: UNK UNK,QCY
     Route: 065
     Dates: start: 2006, end: 2006
  13. METHOTREXATE SODIUM. [Suspect]
     Active Substance: METHOTREXATE SODIUM
     Dosage: 1 DF,QD
     Route: 065
     Dates: start: 2006
  14. EPIRUBICIN [Suspect]
     Active Substance: EPIRUBICIN
     Dosage: 1 DF,QD
     Route: 065
     Dates: start: 2006
  15. TAMOXIFEN CITRATE. [Suspect]
     Active Substance: TAMOXIFEN CITRATE
     Dosage: UNK
  16. GEMCITABINE HYDROCHLORIDE. [Suspect]
     Active Substance: GEMCITABINE HYDROCHLORIDE
     Dosage: 1 DF, QCY
  17. ERIBULIN [Suspect]
     Active Substance: ERIBULIN
     Indication: BREAST CANCER METASTATIC
     Dosage: 1 DF, QCY
     Route: 065
     Dates: start: 2009, end: 2009
  18. CAPECITABINE. [Suspect]
     Active Substance: CAPECITABINE
     Indication: BREAST CANCER METASTATIC
     Dosage: 1 DF, QCY
     Route: 065
     Dates: start: 2009, end: 2009
  19. CAPECITABINE. [Suspect]
     Active Substance: CAPECITABINE
     Dosage: 1 DF, QCY
     Route: 065
     Dates: start: 2009, end: 2009
  20. LAPATINIB [Suspect]
     Active Substance: LAPATINIB
     Indication: RECURRENT CANCER
     Dosage: 1 DF,QD
     Route: 065
     Dates: start: 2009
  21. DOCETAXEL. [Suspect]
     Active Substance: DOCETAXEL
     Indication: RECURRENT CANCER
     Dosage: UNK
     Route: 065
     Dates: start: 2009
  22. VINORELBINE TARTRATE. [Suspect]
     Active Substance: VINORELBINE TARTRATE
     Indication: RECURRENT CANCER
     Dosage: 1 DF, QD
     Route: 065
  23. TRASTUZUMAB. [Suspect]
     Active Substance: TRASTUZUMAB
     Indication: BREAST CANCER METASTATIC
     Dosage: 1 DF, QCY,COMBINATION WITH CAPECITABINE
     Dates: start: 2009
  24. TRASTUZUMAB. [Suspect]
     Active Substance: TRASTUZUMAB
     Dosage: 1 DF, QCY
     Route: 065
     Dates: start: 2009, end: 2009
  25. TRASTUZUMAB. [Suspect]
     Active Substance: TRASTUZUMAB
     Dosage: 1 DF, QCY
     Route: 065
     Dates: start: 2009, end: 2009
  26. TRASTUZUMAB. [Suspect]
     Active Substance: TRASTUZUMAB
     Dosage: 1 DF, QCY
     Route: 065
     Dates: start: 2009, end: 2009
  27. TRASTUZUMAB. [Suspect]
     Active Substance: TRASTUZUMAB
     Dosage: 1 DF, QCY
     Route: 065
     Dates: start: 2009, end: 2009
  28. FULVESTRANT. [Suspect]
     Active Substance: FULVESTRANT
     Indication: BREAST CANCER METASTATIC
     Dosage: 1 DF, QCY
     Route: 030
     Dates: start: 2009, end: 2009
  29. EVEROLIMUS. [Suspect]
     Active Substance: EVEROLIMUS
     Indication: PROPHYLAXIS AGAINST TRANSPLANT REJECTION
     Dosage: UNK
  30. CAPECITABINE. [Suspect]
     Active Substance: CAPECITABINE
     Dosage: 1 DF,QD
     Route: 065
     Dates: start: 2009
  31. VINORELBINE TARTRATE. [Suspect]
     Active Substance: VINORELBINE TARTRATE
     Indication: BREAST CANCER METASTATIC
     Dosage: 1 DF, QCY
     Route: 065
     Dates: start: 2009, end: 2009
  32. EPIRUBICIN [Suspect]
     Active Substance: EPIRUBICIN
     Indication: BREAST CANCER METASTATIC
     Dosage: UNK UNK,QCY
     Route: 065
     Dates: start: 2006, end: 2006
  33. TRASTUZUMAB. [Suspect]
     Active Substance: TRASTUZUMAB
     Indication: RECURRENT CANCER
     Dosage: 1 DF, QCY,COMBINATION WITH GEMCITABINE AND CARBOPLATIN
     Route: 065
     Dates: start: 2009, end: 2009
  34. TRASTUZUMAB. [Suspect]
     Active Substance: TRASTUZUMAB
     Dosage: 1 DF, QCY
     Route: 065
     Dates: start: 2009, end: 2009
  35. TRASTUZUMAB. [Suspect]
     Active Substance: TRASTUZUMAB
     Dosage: 1 DF, QCY
     Route: 065
     Dates: start: 2009, end: 2009
  36. TRASTUZUMAB. [Suspect]
     Active Substance: TRASTUZUMAB
     Dosage: 1 DF,QD
     Route: 065
     Dates: start: 2009
  37. LAPATINIB [Suspect]
     Active Substance: LAPATINIB
     Indication: BREAST CANCER METASTATIC
     Dosage: 1 DF, QD
     Route: 065
     Dates: start: 2009, end: 2009
  38. LAPATINIB [Suspect]
     Active Substance: LAPATINIB
     Indication: METASTATIC MALIGNANT MELANOMA
  39. LIPOSOMAL DOXORUBICIN HYDROCHLORIDE [Suspect]
     Active Substance: DOXORUBICIN HYDROCHLORIDE
     Indication: BREAST CANCER METASTATIC
     Dosage: 1 DF, QCY
     Route: 065
     Dates: start: 2009, end: 2009
  40. LIPOSOMAL DOXORUBICIN HYDROCHLORIDE [Suspect]
     Active Substance: DOXORUBICIN HYDROCHLORIDE
     Indication: RECURRENT CANCER
     Dosage: 1 DF,QD,COMBINATION WITH TRASTUZUMAB
     Route: 065
     Dates: start: 2009
  41. CARBOPLATIN. [Suspect]
     Active Substance: CARBOPLATIN
     Indication: RECURRENT CANCER
     Dosage: 1 DF, QCY
     Route: 065
     Dates: start: 2009, end: 2009
  42. CARBOPLATIN. [Suspect]
     Active Substance: CARBOPLATIN
     Indication: BREAST CANCER METASTATIC
     Dosage: 1 DF,QD
     Route: 065
     Dates: start: 2009, end: 2009
  43. FULVESTRANT. [Suspect]
     Active Substance: FULVESTRANT
     Indication: RECURRENT CANCER
     Dosage: 1 DF, QD
     Route: 065
     Dates: start: 2009
  44. EVEROLIMUS. [Suspect]
     Active Substance: EVEROLIMUS
     Indication: RECURRENT CANCER
     Dosage: 1 DF,QD
     Route: 065
     Dates: start: 2009
  45. FLUOROURACIL. [Suspect]
     Active Substance: FLUOROURACIL
     Indication: BREAST CANCER METASTATIC
     Dosage: 1 DF, QCY
     Route: 065
     Dates: start: 2006, end: 2006
  46. EXEMESTANE. [Suspect]
     Active Substance: EXEMESTANE
     Indication: BREAST CANCER METASTATIC
     Dosage: 1 DF,QD
     Route: 065
     Dates: start: 2009
  47. EVEROLIMUS. [Suspect]
     Active Substance: EVEROLIMUS
     Indication: BREAST CANCER METASTATIC
     Dosage: 1 DF, QCY
     Route: 065
     Dates: start: 2009, end: 2009
  48. CYCLOPHOSPHAMIDE MONOHYDRATE [Suspect]
     Active Substance: CYCLOPHOSPHAMIDE
     Dosage: 1 DF,QD
     Route: 065
     Dates: start: 2006
  49. GEMCITABINE HYDROCHLORIDE. [Suspect]
     Active Substance: GEMCITABINE HYDROCHLORIDE
     Indication: BREAST CANCER METASTATIC
     Dosage: ,COMBINATION WITH TRASTUZUMAB AND CARBOPLATIN1 DF, QD
     Route: 065
     Dates: start: 2009, end: 2009
  50. GEMCITABINE HYDROCHLORIDE. [Suspect]
     Active Substance: GEMCITABINE HYDROCHLORIDE
     Indication: RECURRENT CANCER
     Dosage: UNK

REACTIONS (8)
  - Metastases to lung [Unknown]
  - Skin mass [Unknown]
  - Malignant neoplasm progression [Unknown]
  - Oestrogen receptor positive breast cancer [Unknown]
  - Metastases to bone [Unknown]
  - Recurrent cancer [Unknown]
  - Metastases to skin [Unknown]
  - Metastases to lymph nodes [Unknown]

NARRATIVE: CASE EVENT DATE: 2009
